FAERS Safety Report 9444890 (Version 2)
Quarter: 2013Q4

REPORT INFORMATION
  Report Type: Spontaneous
  Country: GB (occurrence: GB)
  Receive Date: 20130807
  Receipt Date: 20131106
  Transmission Date: 20140711
  Serious: Yes (Death, Hospitalization, Other)
  Sender: FDA-Public Use
  Company Number: GB-B.I. PHARMACEUTICALS,INC./RIDGEFIELD-2013-UK-01612UK

PATIENT
  Age: 86 Year
  Sex: Female
  Weight: 76.2 kg

DRUGS (5)
  1. PRADAXA [Suspect]
     Indication: ATRIAL FIBRILLATION
     Route: 048
  2. AMLODIPINE [Concomitant]
     Dates: start: 20130418, end: 20130612
  3. ASPIRIN [Concomitant]
     Dates: start: 20130515, end: 20130525
  4. RAMIPRIL [Concomitant]
     Dates: start: 20130418, end: 20130612
  5. TEMAZEPAM [Concomitant]
     Dates: start: 20130418, end: 20130612

REACTIONS (1)
  - Gastrointestinal haemorrhage [Fatal]
